FAERS Safety Report 13102382 (Version 1)
Quarter: 2017Q1

REPORT INFORMATION
  Report Type: Spontaneous
  Country: US (occurrence: US)
  Receive Date: 20170110
  Receipt Date: 20170110
  Transmission Date: 20170428
  Serious: No
  Sender: FDA-Public Use
  Company Number: US-ALLERGAN-1653374US

PATIENT
  Age: 43 Year
  Sex: Male

DRUGS (1)
  1. PRED FORTE [Suspect]
     Active Substance: PREDNISOLONE ACETATE
     Indication: EPISCLERITIS
     Route: 047

REACTIONS (3)
  - Ocular discomfort [Not Recovered/Not Resolved]
  - Superior limbic keratoconjunctivitis [Not Recovered/Not Resolved]
  - Intraocular pressure increased [Unknown]

NARRATIVE: CASE EVENT DATE: 201603
